FAERS Safety Report 25791252 (Version 1)
Quarter: 2025Q3

REPORT INFORMATION
  Report Type: Spontaneous
  Country: EU (occurrence: EU)
  Receive Date: 20250911
  Receipt Date: 20250911
  Transmission Date: 20251020
  Serious: Yes (Hospitalization)
  Sender: NOVO NORDISK
  Company Number: None

PATIENT
  Age: 57 Year
  Sex: Female

DRUGS (11)
  1. OZEMPIC [Suspect]
     Active Substance: SEMAGLUTIDE
     Indication: Diabetes mellitus
     Dosage: 2.5 MG, QW
     Dates: start: 202110, end: 20250616
  2. GLIMEPIRIDE [Concomitant]
     Active Substance: GLIMEPIRIDE
  3. FUROSEMIDE [Concomitant]
     Active Substance: FUROSEMIDE
  4. SPIRONOLACTONE [Concomitant]
     Active Substance: SPIRONOLACTONE
  5. ALLOPURINOL [Concomitant]
     Active Substance: ALLOPURINOL
  6. GLUCOPHAGE [Concomitant]
     Active Substance: METFORMIN HYDROCHLORIDE
  7. LOSARTAN [Concomitant]
     Active Substance: LOSARTAN
  8. JARDIANCE [Concomitant]
     Active Substance: EMPAGLIFLOZIN
  9. PREGABALIN [Concomitant]
     Active Substance: PREGABALIN
  10. TRESIBA [Concomitant]
     Active Substance: INSULIN DEGLUDEC
  11. NOVORAPID [Concomitant]
     Active Substance: INSULIN ASPART

REACTIONS (5)
  - Back pain [Recovering/Resolving]
  - Delirium [Recovering/Resolving]
  - Pancreatitis [Recovering/Resolving]
  - Abdominal pain [Recovering/Resolving]
  - Nausea [Recovering/Resolving]

NARRATIVE: CASE EVENT DATE: 20250501
